FAERS Safety Report 17193780 (Version 2)
Quarter: 2020Q1

REPORT INFORMATION
  Report Type: Spontaneous
  Country: GR (occurrence: GR)
  Receive Date: 20191223
  Receipt Date: 20200124
  Transmission Date: 20200409
  Serious: Yes (Hospitalization)
  Sender: FDA-Public Use
  Company Number: GR-ACTELION-A-US2019-199829

PATIENT
  Sex: Female

DRUGS (1)
  1. ILOPROST. [Suspect]
     Active Substance: ILOPROST
     Indication: PRODUCT USED FOR UNKNOWN INDICATION
     Route: 055

REACTIONS (2)
  - Pulmonary hypertension [Unknown]
  - Wrong technique in product usage process [Unknown]
